FAERS Safety Report 8457979-0 (Version None)
Quarter: 2012Q2

REPORT INFORMATION
  Report Type: 
  Country: None (occurrence: None)
  Receive Date: 20120622
  Receipt Date: 20120612
  Transmission Date: 20120825
  Serious: Yes (Hospitalization, Other)
  Sender: FDA-Public Use
  Company Number: ES-JNJFOC-20120607922

PATIENT
  Age: 37 Year
  Sex: Male

DRUGS (2)
  1. OLANZAPINE [Suspect]
     Indication: MENTAL IMPAIRMENT
     Route: 065
     Dates: start: 20120101
  2. RISPERDAL CONSTA [Suspect]
     Indication: MENTAL IMPAIRMENT
     Route: 030
     Dates: start: 20120101, end: 20120216

REACTIONS (1)
  - DEEP VEIN THROMBOSIS [None]
